FAERS Safety Report 8389360 (Version 2)
Quarter: 2012Q4

REPORT INFORMATION
  Report Type: 
  Country: US (occurrence: US)
  Receive Date: 20120203
  Receipt Date: 20121029
  Transmission Date: 20130627
  Serious: Yes (Other)
  Sender: FDA-Public Use
  Company Number: US-ROCHE-783977

PATIENT
  Age: 18 None
  Sex: Male
  Weight: 77.18 kg

DRUGS (3)
  1. ACCUTANE [Suspect]
     Indication: ACNE
     Route: 065
     Dates: start: 19890713, end: 19890813
  2. ACCUTANE [Suspect]
     Route: 065
     Dates: start: 19900226, end: 19900326
  3. ACCUTANE [Suspect]
     Route: 065

REACTIONS (6)
  - Inflammatory bowel disease [Unknown]
  - Colitis ulcerative [Unknown]
  - Stress [Unknown]
  - Depression [Unknown]
  - Haemorrhoids [Unknown]
  - Erythema [Unknown]
